FAERS Safety Report 10592712 (Version 1)
Quarter: 2014Q4

REPORT INFORMATION
  Report Type: Spontaneous
  Country: IT (occurrence: None)
  Receive Date: 20141117
  Receipt Date: 20141117
  Transmission Date: 20150529
  Serious: Yes (Other)
  Sender: FDA-Public Use
  Company Number: FK201404960

PATIENT
  Age: 33 Year
  Sex: Female

DRUGS (2)
  1. BUPIVACAINE (MANUFACTURER UNKNOWN) (BUPIVACAINE) (BUPIVACAINE) [Suspect]
     Active Substance: BUPIVACAINE
     Indication: CAESAREAN SECTION
     Route: 008
  2. PHENOBARBITAL (PHENOBARBITAL) [Concomitant]
     Active Substance: PHENOBARBITAL

REACTIONS (14)
  - Back pain [None]
  - Nausea [None]
  - Brain midline shift [None]
  - Hypoaesthesia oral [None]
  - Exposure during pregnancy [None]
  - Bradypnoea [None]
  - Pupils unequal [None]
  - Hypoaesthesia [None]
  - Somnolence [None]
  - Eyelid oedema [None]
  - Loss of consciousness [None]
  - Headache [None]
  - Subdural haematoma [None]
  - Muscular weakness [None]
